FAERS Safety Report 10485560 (Version 3)
Quarter: 2014Q4

REPORT INFORMATION
  Report Type: Spontaneous
  Country: JP (occurrence: JP)
  Receive Date: 20140930
  Receipt Date: 20141120
  Transmission Date: 20150528
  Serious: Yes (Death, Hospitalization)
  Sender: FDA-Public Use
  Company Number: JP-BRISTOL-MYERS SQUIBB COMPANY-21400460

PATIENT
  Age: 84 Year
  Sex: Female

DRUGS (6)
  1. AMLODIPINE [Concomitant]
     Active Substance: AMLODIPINE BESYLATE
  2. TERNELIN [Concomitant]
     Active Substance: TIZANIDINE
  3. ISOSORBIDE [Concomitant]
     Active Substance: ISOSORBIDE
  4. LIVALO [Concomitant]
     Active Substance: PITAVASTATIN CALCIUM
  5. HALFDIGOXIN [Concomitant]
     Active Substance: DIGOXIN
  6. ELIQUIS [Suspect]
     Active Substance: APIXABAN

REACTIONS (4)
  - Cerebral artery embolism [Fatal]
  - Cerebral infarction [Fatal]
  - Peripheral embolism [Fatal]
  - Brain herniation [Fatal]

NARRATIVE: CASE EVENT DATE: 20140830
